FAERS Safety Report 7401405-7 (Version None)
Quarter: 2011Q2

REPORT INFORMATION
  Report Type: 
  Country: None (occurrence: None)
  Receive Date: 20110407
  Receipt Date: 20110222
  Transmission Date: 20111010
  Serious: Yes (Other)
  Sender: FDA-Public Use
  Company Number: US-BAYER-200933976NA

PATIENT
  Sex: Female
  Weight: 98.182 kg

DRUGS (26)
  1. PROCRIT [Concomitant]
  2. HYDRALAZINE [Concomitant]
     Dosage: 50 MG, BID
  3. ALLOPURINOL [Concomitant]
     Dosage: 300 MG, UNK
  4. SODIUM BICARBONATE [Concomitant]
     Dosage: 650 MG, TID
  5. ARANESP [Concomitant]
  6. APRESOLINE [Concomitant]
     Dosage: 50 MG, TWO TABLETS DAILY
  7. ACTOS [Concomitant]
     Dosage: 30 MG, QD
  8. PLAVIX [Concomitant]
  9. ISOSORBIDE MONONITRATE [Concomitant]
     Dosage: 60 MG, QD
  10. FERROUS SULFATE TAB [Concomitant]
     Dosage: 325 MG, TID
  11. ASPIRIN [Concomitant]
     Dosage: 81 MG, QD
  12. COLCHICINE [Concomitant]
     Dosage: 0.6 MG, BID
  13. XANAX [Concomitant]
     Dosage: 0.5 MG, QID
  14. CLONIDINE [Concomitant]
     Dosage: 0.2 MG, BID
  15. LISINOPRIL [Concomitant]
     Dosage: 20 MG, QD
  16. MIRALAX [Concomitant]
  17. MULTI-VITAMIN [Concomitant]
  18. AVANDIA [Concomitant]
     Dosage: 8 MG, QD
  19. AMBIEN [Concomitant]
  20. INDOMETHACIN [Concomitant]
     Dosage: 75 MG, TWO DAILY
  21. SEVELAMER [Concomitant]
  22. MAGNEVIST [Suspect]
     Indication: NUCLEAR MAGNETIC RESONANCE IMAGING ABDOMINAL
     Dosage: 2.5ML/SEC
     Route: 042
     Dates: start: 20051228, end: 20051228
  23. FUROSEMIDE [Concomitant]
     Dosage: 20 MG, TWO TABLETS DAILY
  24. GLIPIZIDE [Concomitant]
  25. NORVASC [Concomitant]
     Dosage: 10 MG, HS
  26. ATENOLOL [Concomitant]
     Dosage: 50 MG, BID

REACTIONS (16)
  - SKIN PLAQUE [None]
  - PAIN [None]
  - RASH MACULAR [None]
  - NEPHROGENIC SYSTEMIC FIBROSIS [None]
  - SKIN MASS [None]
  - SKIN DISORDER [None]
  - HYPOAESTHESIA [None]
  - SKIN EXFOLIATION [None]
  - DERMATITIS [None]
  - PRURITUS [None]
  - PEAU D'ORANGE [None]
  - SKIN ATROPHY [None]
  - SKIN HYPERTROPHY [None]
  - RASH [None]
  - SKIN INDURATION [None]
  - ALOPECIA [None]
